FAERS Safety Report 21378168 (Version 1)
Quarter: 2022Q3

REPORT INFORMATION
  Report Type: Spontaneous
  Country: GB (occurrence: GB)
  Receive Date: 20220926
  Receipt Date: 20220926
  Transmission Date: 20221027
  Serious: Yes (Death, Life-Threatening, Hospitalization, Disabling, Other)
  Sender: FDA-Public Use
  Company Number: GB-EMA-DD-20181204-jain_h1-093535

PATIENT
  Age: 76 Year
  Sex: Male
  Weight: 69 kg

DRUGS (51)
  1. CEFUROXIME [Suspect]
     Active Substance: CEFUROXIME
     Indication: Product used for unknown indication
     Dosage: UNK
     Route: 065
  2. CEFUROXIME [Suspect]
     Active Substance: CEFUROXIME
     Dosage: UNK
     Route: 065
     Dates: start: 20180131
  3. DEXTROSE [Suspect]
     Active Substance: DEXTROSE
     Indication: Product used for unknown indication
     Route: 065
  4. TACROLIMUS [Interacting]
     Active Substance: TACROLIMUS
     Indication: Renal transplant
     Dosage: 1.5 MILLIGRAM, BID
     Route: 065
     Dates: start: 20100127, end: 20180130
  5. TACROLIMUS [Interacting]
     Active Substance: TACROLIMUS
     Dosage: 15 MG, BID
     Route: 065
  6. TACROLIMUS [Interacting]
     Active Substance: TACROLIMUS
     Dosage: 4 MILLIGRAM, QD
     Route: 065
     Dates: start: 20180128
  7. TACROLIMUS [Interacting]
     Active Substance: TACROLIMUS
     Route: 065
     Dates: start: 20180127
  8. TACROLIMUS [Suspect]
     Active Substance: TACROLIMUS
     Indication: Renal transplant
     Dosage: 3 MG, QD (1.5 MILLIGRAM, BID)
     Route: 065
     Dates: start: 20100127, end: 20180130
  9. TACROLIMUS [Suspect]
     Active Substance: TACROLIMUS
     Indication: Prophylaxis against transplant rejection
     Dosage: 1.5 MG, QD
     Route: 065
     Dates: start: 20180127
  10. TACROLIMUS [Suspect]
     Active Substance: TACROLIMUS
     Dosage: 4 MG, QD
     Route: 065
     Dates: start: 20180128
  11. TACROLIMUS [Suspect]
     Active Substance: TACROLIMUS
     Dosage: 15 MG, BID
     Route: 065
     Dates: start: 20180127
  12. BISOPROLOL [Suspect]
     Active Substance: BISOPROLOL
     Indication: Product used for unknown indication
     Dosage: UNK
     Route: 065
  13. NITROGLYCERIN [Suspect]
     Active Substance: NITROGLYCERIN
     Indication: Product used for unknown indication
     Dosage: UNK
     Route: 065
  14. OMEPRAZOLE [Suspect]
     Active Substance: OMEPRAZOLE
     Indication: Product used for unknown indication
     Dosage: 20 MG, MONTHLY
     Route: 048
  15. OMEPRAZOLE [Suspect]
     Active Substance: OMEPRAZOLE
     Dosage: MORNING
     Route: 048
  16. CLARITHROMYCIN [Suspect]
     Active Substance: CLARITHROMYCIN
     Indication: Lower respiratory tract infection
     Dosage: 500 MG, BID
     Route: 042
     Dates: start: 20180127, end: 20180131
  17. ENVARSUS XR [Suspect]
     Active Substance: TACROLIMUS
     Indication: Prophylaxis against transplant rejection
     Route: 065
  18. ENVARSUS XR [Suspect]
     Active Substance: TACROLIMUS
     Dosage: 3 MG, QD (1.5 MG, BID)
     Route: 048
     Dates: start: 20180127, end: 20180131
  19. ALFACALCIDOL [Suspect]
     Active Substance: ALFACALCIDOL
     Indication: Product used for unknown indication
     Route: 065
  20. DOXYCYCLINE [Suspect]
     Active Substance: DOXYCYCLINE
     Indication: Product used for unknown indication
     Route: 065
  21. SENNOSIDES A AND B [Suspect]
     Active Substance: SENNOSIDES A AND B
     Indication: Product used for unknown indication
     Route: 065
  22. ALFACALCIDOL [Suspect]
     Active Substance: ALFACALCIDOL
     Indication: Product used for unknown indication
     Dosage: 500 NG, QD
     Route: 065
  23. ALFACALCIDOL [Suspect]
     Active Substance: ALFACALCIDOL
     Indication: Product used for unknown indication
     Dosage: 500 NG, QD
     Route: 048
  24. NITROGLYCERIN [Suspect]
     Active Substance: NITROGLYCERIN
     Indication: Product used for unknown indication
     Route: 065
  25. HYDROCORTISONE [Suspect]
     Active Substance: HYDROCORTISONE
     Indication: Product used for unknown indication
     Dosage: 150 MG, QD (50 MILLIGRAM, TID)
     Route: 042
     Dates: start: 20180201
  26. HYDROCORTISONE [Suspect]
     Active Substance: HYDROCORTISONE
     Dosage: 150 MG, QD (50 MILLIGRAM, TID)
     Route: 042
     Dates: start: 20180201
  27. HYDROCORTISONE [Suspect]
     Active Substance: HYDROCORTISONE
     Dosage: 150 MILLIGRAM, TID
     Route: 042
     Dates: start: 20180201
  28. SENNA LEAF [Concomitant]
     Active Substance: SENNA LEAF
     Indication: Product used for unknown indication
     Dosage: 15 MG, UNK ON NIGHT
     Route: 048
  29. CHOLECALCIFEROL [Concomitant]
     Active Substance: CHOLECALCIFEROL
     Indication: Product used for unknown indication
     Dosage: MORNING
     Route: 048
  30. CHOLECALCIFEROL [Concomitant]
     Active Substance: CHOLECALCIFEROL
     Dosage: 20 NG, MONTHLY
     Route: 048
  31. DEXTROSE [Concomitant]
     Active Substance: DEXTROSE
     Indication: Product used for unknown indication
     Dosage: UNK
     Dates: start: 20180130
  32. ALBUTEROL [Concomitant]
     Active Substance: ALBUTEROL
     Indication: Product used for unknown indication
     Dosage: UNK
  33. GLICLAZIDE [Concomitant]
     Active Substance: GLICLAZIDE
     Indication: Product used for unknown indication
     Dosage: MORNING
     Route: 048
  34. GLICLAZIDE [Concomitant]
     Active Substance: GLICLAZIDE
     Dosage: 40 MG, MONTHLY
     Route: 048
  35. PREDNISOLONE [Concomitant]
     Active Substance: PREDNISOLONE
     Indication: Product used for unknown indication
     Dosage: 10 MG (INCREASE PREDNISOLONE TO 10 MG FOR 5 DAYS)
     Route: 065
  36. PREDNISOLONE [Concomitant]
     Active Substance: PREDNISOLONE
     Dosage: 5 MG, QMO (INCREASE PREDNISOLONE TO 10 MG FOR 5 DAYS)
     Route: 065
     Dates: end: 20180127
  37. ALLOPURINOL SODIUM [Concomitant]
     Active Substance: ALLOPURINOL SODIUM
     Indication: Product used for unknown indication
     Dosage: 100 MILLIGRAM, QD
     Route: 048
  38. BETAHISTINE [Concomitant]
     Active Substance: BETAHISTINE
     Indication: Product used for unknown indication
     Dosage: MORNING
     Route: 048
  39. BETAHISTINE [Concomitant]
     Active Substance: BETAHISTINE
     Dosage: 8 MG, MONTHLY
     Route: 048
  40. FUROSEMIDE [Concomitant]
     Active Substance: FUROSEMIDE
     Indication: Product used for unknown indication
     Dosage: 80MG MORNING, 40MG 12PM
     Route: 048
     Dates: end: 20180130
  41. FUROSEMIDE [Concomitant]
     Active Substance: FUROSEMIDE
     Dosage: 40 MG, UNK 12 PM
     Route: 048
  42. FUROSEMIDE [Concomitant]
     Active Substance: FUROSEMIDE
     Dosage: 80 MG, MONTHLY
     Route: 048
     Dates: end: 20180130
  43. EPLERENONE [Concomitant]
     Active Substance: EPLERENONE
     Indication: Product used for unknown indication
     Dosage: MORNING
     Route: 048
  44. EPLERENONE [Concomitant]
     Active Substance: EPLERENONE
     Dosage: 25 MG, MONTHLY
     Route: 048
     Dates: start: 20180130
  45. GLUCOGEL [Concomitant]
     Indication: Product used for unknown indication
     Dosage: UNK
     Route: 065
     Dates: start: 20180130
  46. GLUCOGEL [Concomitant]
     Dosage: UNK
     Route: 065
  47. GLUCAGON [Concomitant]
     Active Substance: GLUCAGON
     Indication: Product used for unknown indication
     Dosage: UNK
     Route: 030
     Dates: start: 20180130
  48. NITROGLYCERIN [Concomitant]
     Active Substance: NITROGLYCERIN
     Indication: Product used for unknown indication
     Dosage: UNK
     Route: 065
  49. DOXYCYCLINE [Concomitant]
     Active Substance: DOXYCYCLINE
     Indication: Product used for unknown indication
     Dosage: UNK
     Route: 065
  50. SENNOSIDES A AND B [Concomitant]
     Active Substance: SENNOSIDES A AND B
     Indication: Product used for unknown indication
     Route: 065
  51. CALCIUM CARBONATE [Concomitant]
     Active Substance: CALCIUM CARBONATE
     Indication: Product used for unknown indication
     Route: 065

REACTIONS (36)
  - Oesophageal carcinoma [Fatal]
  - Drug level increased [Fatal]
  - Oesophageal perforation [Fatal]
  - Myocardial ischaemia [Fatal]
  - Oesophageal carcinoma [Fatal]
  - Drug interaction [Fatal]
  - Labelled drug-drug interaction medication error [Fatal]
  - Immunosuppressant drug level increased [Fatal]
  - Acute kidney injury [Fatal]
  - Pneumonia [Fatal]
  - Cardiac failure congestive [Fatal]
  - Dyspnoea [Fatal]
  - Pyrexia [Fatal]
  - Rash [Fatal]
  - Soft tissue mass [Fatal]
  - Transplant failure [Fatal]
  - Toxicity to various agents [Fatal]
  - Inflammatory marker increased [Fatal]
  - Hypoglycaemia [Fatal]
  - Productive cough [Fatal]
  - Cardiomegaly [Fatal]
  - Pleural effusion [Fatal]
  - Ascites [Fatal]
  - Dysphagia [Fatal]
  - Renal impairment [Fatal]
  - Rales [Fatal]
  - Superinfection [Fatal]
  - Lung consolidation [Fatal]
  - Sepsis [Fatal]
  - Malaise [Fatal]
  - Swelling [Fatal]
  - Multimorbidity [Fatal]
  - Cough [Fatal]
  - Lower respiratory tract infection [Unknown]
  - Haemoptysis [Unknown]
  - Oesophageal perforation [Unknown]

NARRATIVE: CASE EVENT DATE: 20180118
